FAERS Safety Report 17422208 (Version 2)
Quarter: 2020Q1

REPORT INFORMATION
  Report Type: Spontaneous
  Country: US (occurrence: US)
  Receive Date: 20200214
  Receipt Date: 20200218
  Transmission Date: 20200409
  Serious: Yes (Hospitalization)
  Sender: FDA-Public Use
  Company Number: US-CELGENEUS-USA-20200203440

PATIENT
  Sex: Female

DRUGS (3)
  1. OTEZLA [Suspect]
     Active Substance: APREMILAST
     Indication: PSORIATIC ARTHROPATHY
     Dosage: 60 MILLIGRAM
     Route: 048
  2. OTEZLA [Suspect]
     Active Substance: APREMILAST
     Dosage: 30 MILLIGRAM
     Route: 048
  3. METHOTREXATE. [Concomitant]
     Active Substance: METHOTREXATE
     Indication: PRODUCT USED FOR UNKNOWN INDICATION
     Route: 065

REACTIONS (8)
  - Arthralgia [Not Recovered/Not Resolved]
  - Intentional product use issue [Not Recovered/Not Resolved]
  - Skin disorder [Not Recovered/Not Resolved]
  - Therapy cessation [Not Recovered/Not Resolved]
  - Skin exfoliation [Not Recovered/Not Resolved]
  - Abdominal wall infection [Not Recovered/Not Resolved]
  - Abdominal wall haemorrhage [Not Recovered/Not Resolved]
  - Breast cancer [Not Recovered/Not Resolved]

NARRATIVE: CASE EVENT DATE: 2020
